FAERS Safety Report 19583158 (Version 1)
Quarter: 2021Q3

REPORT INFORMATION
  Report Type: Spontaneous
  Country: US (occurrence: US)
  Receive Date: 20210720
  Receipt Date: 20210720
  Transmission Date: 20211014
  Serious: Yes (Hospitalization)
  Sender: FDA-Public Use
  Company Number: None

PATIENT
  Age: 73 Year
  Sex: Female

DRUGS (1)
  1. CAPECITABINE. [Suspect]
     Active Substance: CAPECITABINE
     Indication: BREAST CANCER FEMALE
     Route: 048
     Dates: start: 20210319

REACTIONS (7)
  - Nightmare [None]
  - Feeling abnormal [None]
  - Memory impairment [None]
  - Sleep disorder [None]
  - Anxiety [None]
  - Dyspepsia [None]
  - Aphasia [None]
